FAERS Safety Report 18490753 (Version 1)
Quarter: 2020Q4

REPORT INFORMATION
  Report Type: Spontaneous
  Country: US (occurrence: US)
  Receive Date: 20201111
  Receipt Date: 20201111
  Transmission Date: 20210114
  Serious: Yes (Other)
  Sender: FDA-Public Use
  Company Number: US-CADILA HEALTHCARE LIMITED-US-ZYDUS-057941

PATIENT

DRUGS (8)
  1. PRAZIQUANTEL. [Suspect]
     Active Substance: PRAZIQUANTEL
     Indication: NEUROCYSTICERCOSIS
     Dosage: UNK
     Route: 065
  2. PREDNISONE. [Suspect]
     Active Substance: PREDNISONE
     Indication: NEUROCYSTICERCOSIS
     Dosage: 50 MILLIGRAM, QD
     Route: 065
  3. ALBENDAZOLE. [Suspect]
     Active Substance: ALBENDAZOLE
     Indication: NEUROCYSTICERCOSIS
     Dosage: UNK
     Route: 065
  4. DEXAMETHASONE. [Suspect]
     Active Substance: DEXAMETHASONE
     Dosage: UNK (TAPER DOSE)
     Route: 065
  5. ALBENDAZOLE. [Suspect]
     Active Substance: ALBENDAZOLE
     Dosage: UNK (RESTARTED FOR 14 DAYS)
     Route: 065
  6. PRAZIQUANTEL. [Suspect]
     Active Substance: PRAZIQUANTEL
     Dosage: UNK (RESTARTE FOR 14 DAYS)
     Route: 065
  7. DEXAMETHASONE. [Suspect]
     Active Substance: DEXAMETHASONE
     Indication: NEUROCYSTICERCOSIS
     Dosage: 6 MILLIGRAM, QD
     Route: 065
  8. METHOTREXATE. [Suspect]
     Active Substance: METHOTREXATE
     Indication: NEUROCYSTICERCOSIS
     Dosage: 20 MILLIGRAM EVERY WEEK
     Route: 065

REACTIONS (2)
  - Treatment failure [Recovered/Resolved]
  - Osteonecrosis [Recovered/Resolved]
